FAERS Safety Report 8589545-0 (Version None)
Quarter: 2012Q3

REPORT INFORMATION
  Report Type: 
  Country: None (occurrence: None)
  Receive Date: 20120813
  Receipt Date: 20120606
  Transmission Date: 20120928
  Serious: No
  Sender: FDA-Public Use
  Company Number: US-009507513-2012SP032561

PATIENT

DRUGS (1)
  1. DR. SCHOLL'S CLEAR AWAY ONE STEP PLANTAR WART REMOVER [Suspect]
     Indication: SKIN PAPILLOMA
     Dosage: UNK UNK, UNKNOWN
     Route: 061

REACTIONS (3)
  - APPLICATION SITE PAIN [None]
  - LACERATION [None]
  - DRUG INEFFECTIVE [None]
